FAERS Safety Report 8045040-9 (Version None)
Quarter: 2012Q1

REPORT INFORMATION
  Report Type: 
  Country: None (occurrence: None)
  Receive Date: 20120113
  Receipt Date: 20120110
  Transmission Date: 20120608
  Serious: Yes (Death, Other)
  Sender: FDA-Public Use
  Company Number: PHHY2011FR109670

PATIENT
  Sex: Male
  Weight: 63 kg

DRUGS (1)
  1. AFINITOR [Suspect]
     Indication: RENAL CELL CARCINOMA
     Dosage: 10 MG, DAILY
     Route: 065
     Dates: start: 20110330, end: 20110416

REACTIONS (11)
  - GENERAL PHYSICAL HEALTH DETERIORATION [None]
  - INFECTION [None]
  - CHEST DISCOMFORT [None]
  - DIFFUSE ALVEOLAR DAMAGE [None]
  - HYPOXIA [None]
  - TOXICITY TO VARIOUS AGENTS [None]
  - DYSPNOEA [None]
  - FATIGUE [None]
  - LUNG DISORDER [None]
  - ACUTE RESPIRATORY DISTRESS SYNDROME [None]
  - PYREXIA [None]
